FAERS Safety Report 12358768 (Version 1)
Quarter: 2016Q2

REPORT INFORMATION
  Report Type: Spontaneous
  Country: US (occurrence: None)
  Receive Date: 20160511
  Receipt Date: 20160511
  Transmission Date: 20160815
  Serious: Yes (Disabling)
  Sender: FDA-Public Use
  Company Number: None

PATIENT
  Age: 36 Year
  Sex: Female
  Weight: 72.58 kg

DRUGS (4)
  1. HYDROCHLOROTHIAZIDE. [Concomitant]
     Active Substance: HYDROCHLOROTHIAZIDE
  2. DULOXETINE DR [Suspect]
     Active Substance: DULOXETINE
     Indication: PAIN
     Dosage: 1 CAPSULE(S) ONCE A DAY TAKEN BY MOUTH
     Route: 048
  3. TRAMADOL. [Concomitant]
     Active Substance: TRAMADOL
  4. ROBAXIN [Concomitant]
     Active Substance: METHOCARBAMOL

REACTIONS (14)
  - Irritability [None]
  - Joint swelling [None]
  - Agitation [None]
  - Insomnia [None]
  - Confusional state [None]
  - Activities of daily living impaired [None]
  - Anxiety [None]
  - Depressed mood [None]
  - Impaired work ability [None]
  - Peripheral swelling [None]
  - Paranoia [None]
  - Abasia [None]
  - Pain [None]
  - Fear [None]

NARRATIVE: CASE EVENT DATE: 20160401
